FAERS Safety Report 20572245 (Version 3)
Quarter: 2023Q1

REPORT INFORMATION
  Report Type: Spontaneous
  Country: US (occurrence: US)
  Receive Date: 20220309
  Receipt Date: 20230317
  Transmission Date: 20230418
  Serious: Yes (Disabling, Other)
  Sender: FDA-Public Use
  Company Number: US-ORGANON-O2203USA000782

PATIENT
  Sex: Female

DRUGS (1)
  1. SINGULAIR [Suspect]
     Active Substance: MONTELUKAST SODIUM
     Dosage: TAKE ONE TABLET BY MOUTH DAILY AT NIGHT
     Route: 048
     Dates: start: 2010, end: 2012

REACTIONS (5)
  - Neuropsychiatric symptoms [Not Recovered/Not Resolved]
  - Major depression [Not Recovered/Not Resolved]
  - Suicidal ideation [Unknown]
  - Sleep disorder [Unknown]
  - Aggression [Unknown]

NARRATIVE: CASE EVENT DATE: 20150101
